FAERS Safety Report 5117810-8 (Version None)
Quarter: 2006Q3

REPORT INFORMATION
  Report Type: 
  Country: None (occurrence: None)
  Receive Date: 20060929
  Receipt Date: 20060921
  Transmission Date: 20061208
  Serious: Yes (Hospitalization)
  Sender: FDA-Public Use
  Company Number: FR-AVENTIS-200613267FR

PATIENT
  Sex: Male

DRUGS (2)
  1. CLAFORAN [Suspect]
     Route: 037
     Dates: start: 20060918
  2. LIORESAL [Concomitant]
     Indication: QUADRIPLEGIA
     Route: 042

REACTIONS (4)
  - INCORRECT ROUTE OF DRUG ADMINISTRATION [None]
  - MUTISM [None]
  - STUPOR [None]
  - WRONG DRUG ADMINISTERED [None]
